FAERS Safety Report 4339407-X (Version None)
Quarter: 2004Q2

REPORT INFORMATION
  Report Type: 
  Country: None (occurrence: None)
  Receive Date: 20040412
  Receipt Date: 20040325
  Transmission Date: 20050107
  Serious: Yes (Death, Hospitalization, Other)
  Sender: FDA-Public Use
  Company Number: 2002062654

PATIENT
  Age: 54 Year
  Sex: Female

DRUGS (15)
  1. TROVAN [Suspect]
     Indication: WOUND INFECTION
     Dosage: 200 MG (DAILY), ORAL
     Route: 048
     Dates: start: 19990415, end: 19990401
  2. REZULIN [Suspect]
     Indication: DIABETES MELLITUS NON-INSULIN-DEPENDENT
     Dosage: 200 MG (DAILY), ORAL
     Route: 048
     Dates: start: 19980624, end: 19981216
  3. TRETINOIN [Concomitant]
  4. MEDROXYPROGESTERONE [Concomitant]
  5. TRAZODONE HCL [Concomitant]
  6. FLUOXETINE [Concomitant]
  7. GLIPIZIDE [Concomitant]
  8. METFORMIN HCL [Concomitant]
  9. LISINOPRIL [Concomitant]
  10. ESTRADIOL [Concomitant]
  11. IBUPROFEN [Concomitant]
  12. INSULIN [Concomitant]
  13. NIZATIDINE [Concomitant]
  14. HYDROXYZINE [Concomitant]
  15. KAOPECTATE (KAOLIN, PECTIN) [Concomitant]

REACTIONS (76)
  - ACTIVATED PARTIAL THROMBOPLASTIN TIME PROLONGED [None]
  - ACUTE RESPIRATORY DISTRESS SYNDROME [None]
  - AGRANULOCYTOSIS [None]
  - ANAEMIA [None]
  - ANOREXIA [None]
  - ANTIMITOCHONDRIAL ANTIBODY POSITIVE [None]
  - ANTINUCLEAR ANTIBODY POSITIVE [None]
  - ATELECTASIS [None]
  - AUTOIMMUNE HEPATITIS [None]
  - BLOOD ALBUMIN DECREASED [None]
  - BLOOD PRESSURE DECREASED [None]
  - BUNDLE BRANCH BLOCK LEFT [None]
  - BUNDLE BRANCH BLOCK RIGHT [None]
  - CARDIAC ANEURYSM [None]
  - CARDIAC MURMUR [None]
  - CARDIOMEGALY [None]
  - CELLULITIS [None]
  - CHEST DISCOMFORT [None]
  - COAGULOPATHY [None]
  - COMA HEPATIC [None]
  - CONFUSIONAL STATE [None]
  - DEHYDRATION [None]
  - DEMENTIA [None]
  - DIABETES MELLITUS INADEQUATE CONTROL [None]
  - DIARRHOEA [None]
  - DRUG TOXICITY [None]
  - ECTHYMA [None]
  - ELECTROCARDIOGRAM T WAVE ABNORMAL [None]
  - FAECAL OCCULT BLOOD POSITIVE [None]
  - FLUID INTAKE REDUCED [None]
  - GALLBLADDER DISORDER [None]
  - GANGRENE [None]
  - HEART RATE IRREGULAR [None]
  - HEPATIC ENCEPHALOPATHY [None]
  - HEPATIC FAILURE [None]
  - HEPATIC FIBROSIS [None]
  - HEPATIC NECROSIS [None]
  - HEPATITIS [None]
  - HEPATOCELLULAR DAMAGE [None]
  - HEPATOMEGALY [None]
  - HEPATOTOXICITY [None]
  - HYPOGLYCAEMIA [None]
  - HYPOKALAEMIA [None]
  - INJURY [None]
  - INTERNATIONAL NORMALISED RATIO INCREASED [None]
  - METABOLIC ACIDOSIS [None]
  - MYOCARDIAL INFARCTION [None]
  - MYOCARDIAL RUPTURE [None]
  - NEUTROPENIA [None]
  - PAIN IN EXTREMITY [None]
  - PARALYSIS [None]
  - PERICARDIAL EFFUSION [None]
  - PLEURAL EFFUSION [None]
  - PNEUMONIA [None]
  - POSTMENOPAUSAL HAEMORRHAGE [None]
  - POSTOPERATIVE INFECTION [None]
  - PROTHROMBIN TIME PROLONGED [None]
  - PULMONARY ARTERIAL PRESSURE ABNORMAL [None]
  - PULMONARY OEDEMA [None]
  - RENAL IMPAIRMENT [None]
  - SEPSIS [None]
  - SERRATIA SEPSIS [None]
  - SHOCK [None]
  - SKIN DESQUAMATION [None]
  - SMALL INTESTINAL OBSTRUCTION [None]
  - SPIDER NAEVUS [None]
  - SPLENOMEGALY [None]
  - SPUTUM PURULENT [None]
  - TACHYCARDIA [None]
  - TELANGIECTASIA [None]
  - UPPER RESPIRATORY TRACT INFECTION [None]
  - URTICARIA [None]
  - UTERINE LEIOMYOMA [None]
  - VENTRICLE RUPTURE [None]
  - WEIGHT DECREASED [None]
  - WHITE BLOOD CELL COUNT INCREASED [None]
